FAERS Safety Report 5591523-0 (Version None)
Quarter: 2008Q1

REPORT INFORMATION
  Report Type: 
  Country: None (occurrence: None)
  Receive Date: 20080111
  Receipt Date: 20071227
  Transmission Date: 20080703
  Serious: Yes (Hospitalization)
  Sender: FDA-Public Use
  Company Number: 021986

PATIENT
  Age: 34 Year
  Sex: Female
  Weight: 56.7 kg

DRUGS (3)
  1. TRI-SPRINTEC [Suspect]
     Indication: ORAL CONTRACEPTION
     Dosage: 1 TABLET, QD, ORAL
     Route: 048
     Dates: start: 20070101, end: 20070928
  2. NEXIUM [Suspect]
  3. MULTIVITAMIN [Concomitant]

REACTIONS (8)
  - BREAST PAIN [None]
  - BREATH ODOUR [None]
  - FEELING ABNORMAL [None]
  - HEPATOCELLULAR INJURY [None]
  - JAUNDICE [None]
  - NAUSEA [None]
  - RETCHING [None]
  - SKIN HYPERPIGMENTATION [None]
